FAERS Safety Report 14527108 (Version 1)
Quarter: 2018Q1

REPORT INFORMATION
  Report Type: Spontaneous
  Country: US (occurrence: US)
  Receive Date: 20180212
  Receipt Date: 20180212
  Transmission Date: 20180509
  Serious: Yes (Hospitalization)
  Sender: FDA-Public Use
  Company Number: None

PATIENT
  Age: 57 Year
  Sex: Female
  Weight: 56.25 kg

DRUGS (6)
  1. PROBOITICS [Concomitant]
  2. MULTI VITAMIN [Concomitant]
     Active Substance: VITAMINS
  3. ADDERALL [Concomitant]
     Active Substance: AMPHETAMINE ASPARTATE\AMPHETAMINE SULFATE\DEXTROAMPHETAMINE SACCHARATE\DEXTROAMPHETAMINE SULFATE
  4. DULOXATINE [Suspect]
     Active Substance: DULOXETINE
     Indication: FIBROMYALGIA
     Dosage: ?          QUANTITY:2 CAPSULE(S);?
     Route: 048
     Dates: start: 20131202
  5. RELPAX PRN [Concomitant]
  6. DULOXATINE [Concomitant]

REACTIONS (11)
  - Loss of consciousness [None]
  - Feeling hot [None]
  - Serotonin syndrome [None]
  - Therapy change [None]
  - Paraesthesia [None]
  - Hypertension [None]
  - Mydriasis [None]
  - Diarrhoea [None]
  - Hyperhidrosis [None]
  - Syncope [None]
  - Dyskinesia [None]

NARRATIVE: CASE EVENT DATE: 20180212
